FAERS Safety Report 21709286 (Version 1)
Quarter: 2022Q4

REPORT INFORMATION
  Report Type: Report from Study
  Country: US (occurrence: US)
  Receive Date: 20221210
  Receipt Date: 20221210
  Transmission Date: 20230113
  Serious: No
  Sender: FDA-Public Use
  Company Number: US-ABBVIE-4230559

PATIENT
  Age: 77 Year
  Sex: Male

DRUGS (1)
  1. IMBRUVICA [Suspect]
     Active Substance: IBRUTINIB
     Indication: Product used for unknown indication
     Route: 048

REACTIONS (4)
  - Pustule [Recovered/Resolved]
  - Nasopharyngitis [Unknown]
  - Pustule [Recovering/Resolving]
  - Vertebral column mass [Unknown]

NARRATIVE: CASE EVENT DATE: 20221001
